FAERS Safety Report 5025547-9 (Version None)
Quarter: 2006Q2

REPORT INFORMATION
  Report Type: 
  Country: None (occurrence: None)
  Receive Date: 20060426
  Receipt Date: 20060203
  Transmission Date: 20061013
  Serious: Yes (Other)
  Sender: FDA-Public Use
  Company Number: 2006018082

PATIENT
  Age: 52 Year
  Sex: Female

DRUGS (16)
  1. LYRICA [Suspect]
     Indication: BACK PAIN
     Dosage: 100 MG (50 MG, 2 IN 1 D), ORAL
     Route: 048
     Dates: start: 20051129
  2. LYRICA [Suspect]
     Indication: HYPOAESTHESIA
     Dosage: 100 MG (50 MG, 2 IN 1 D), ORAL
     Route: 048
     Dates: start: 20051129
  3. LYRICA [Suspect]
     Indication: NEUROPATHY PERIPHERAL
     Dosage: 100 MG (50 MG, 2 IN 1 D), ORAL
     Route: 048
     Dates: start: 20051129
  4. LYRICA [Suspect]
     Indication: PARAESTHESIA
     Dosage: 100 MG (50 MG, 2 IN 1 D), ORAL
     Route: 048
     Dates: start: 20051129
  5. NOVOLOG [Concomitant]
  6. LANTUS [Concomitant]
  7. BENADRYL [Concomitant]
  8. ASPIRIN [Concomitant]
  9. ZOCOR [Concomitant]
  10. ZANTAC [Concomitant]
  11. PAXIL CR [Concomitant]
  12. CODEINE (CODEINE) [Concomitant]
  13. HYDROCHLOROTHIAZIDE [Concomitant]
  14. VALSARTAN [Concomitant]
  15. FLEXERIL (CYCLOBENAZAPRINE HYDROCHLORIDE) [Concomitant]
  16. AMITRIPTYLINE HCL [Concomitant]

REACTIONS (2)
  - DRUG INEFFECTIVE [None]
  - SWELLING FACE [None]
